FAERS Safety Report 13013631 (Version 1)
Quarter: 2016Q4

REPORT INFORMATION
  Report Type: Spontaneous
  Country: IN (occurrence: IN)
  Receive Date: 20161209
  Receipt Date: 20161209
  Transmission Date: 20170207
  Serious: Yes (Other)
  Sender: FDA-Public Use
  Company Number: PHHY2016IN166064

PATIENT
  Age: 5 Year
  Sex: Female

DRUGS (4)
  1. LANTHANUM CARBONATE. [Concomitant]
     Active Substance: LANTHANUM CARBONATE
     Indication: PRODUCT USED FOR UNKNOWN INDICATION
     Dosage: 250 MG, TID
     Route: 065
  2. ACETAZOLAMIDE. [Suspect]
     Active Substance: ACETAZOLAMIDE
     Indication: CALCINOSIS
     Route: 065
  3. PAMIDRONATE [Suspect]
     Active Substance: PAMIDRONATE DISODIUM
     Indication: CALCINOSIS
     Dosage: UNK
     Route: 042
  4. ALENDRONATE [Suspect]
     Active Substance: ALENDRONATE SODIUM
     Indication: CALCINOSIS
     Route: 048

REACTIONS (5)
  - Bone lesion [Unknown]
  - Joint contracture [Unknown]
  - Arthralgia [Unknown]
  - Treatment failure [Unknown]
  - Product use issue [Unknown]
